FAERS Safety Report 10208523 (Version 1)
Quarter: 2014Q2

REPORT INFORMATION
  Report Type: Spontaneous
  Country: NO (occurrence: NO)
  Receive Date: 20140530
  Receipt Date: 20140530
  Transmission Date: 20141212
  Serious: Yes (Death, Hospitalization, Other)
  Sender: FDA-Public Use
  Company Number: 2014SP002969

PATIENT
  Age: 73 Year
  Sex: Male

DRUGS (5)
  1. DOXORUBICIN [Suspect]
     Indication: LYMPHOMA
  2. VINCRISTINE [Suspect]
     Indication: LYMPHOMA
  3. CYCLOPHOSPHAMIDE [Suspect]
     Indication: PRODUCT USED FOR UNKNOWN INDICATION
  4. RITUXIMAB [Suspect]
     Indication: LYMPHOMA
     Dates: start: 20140204, end: 20140318
  5. PREDNISOLONE [Concomitant]
     Indication: LYMPHOMA

REACTIONS (3)
  - Pneumocystis jirovecii infection [Fatal]
  - Respiratory failure [Fatal]
  - Febrile neutropenia [Unknown]
